FAERS Safety Report 10533746 (Version 2)
Quarter: 2014Q4

REPORT INFORMATION
  Report Type: Report from Study
  Country: CA (occurrence: CA)
  Receive Date: 20141022
  Receipt Date: 20141022
  Transmission Date: 20150529
  Serious: Yes (Hospitalization)
  Sender: FDA-Public Use
  Company Number: CA-JNJFOC-20140818177

PATIENT
  Age: 58 Year
  Sex: Male
  Weight: 91 kg

DRUGS (3)
  1. REMICADE [Suspect]
     Active Substance: INFLIXIMAB
     Indication: CROHN^S DISEASE
     Route: 042
     Dates: start: 201408
  2. IMURAN [Concomitant]
     Active Substance: AZATHIOPRINE
     Route: 065
  3. REMICADE [Suspect]
     Active Substance: INFLIXIMAB
     Indication: CROHN^S DISEASE
     Route: 042
     Dates: start: 20131201

REACTIONS (9)
  - Asthenia [Unknown]
  - Blood glucose increased [Unknown]
  - Chest pain [Unknown]
  - Spinal pain [Unknown]
  - Pollakiuria [Unknown]
  - Hypertension [Unknown]
  - Infusion related reaction [Unknown]
  - Fatigue [Unknown]
  - Thirst [Unknown]

NARRATIVE: CASE EVENT DATE: 201407
